FAERS Safety Report 13068390 (Version 1)
Quarter: 2016Q4

REPORT INFORMATION
  Report Type: Spontaneous
  Country: US (occurrence: US)
  Receive Date: 20161227
  Receipt Date: 20161227
  Transmission Date: 20170207
  Serious: Yes (Life-Threatening, Hospitalization)
  Sender: FDA-Public Use
  Company Number: None

PATIENT
  Age: 87 Year
  Sex: Male
  Weight: 81 kg

DRUGS (1)
  1. SUNITINIB [Suspect]
     Active Substance: SUNITINIB
     Indication: METASTATIC RENAL CELL CARCINOMA
     Route: 048

REACTIONS (5)
  - Asthenia [None]
  - Cryptococcal fungaemia [None]
  - Refusal of treatment by relative [None]
  - Clostridium difficile infection [None]
  - Dyspnoea [None]

NARRATIVE: CASE EVENT DATE: 20161220
